FAERS Safety Report 18936401 (Version 1)
Quarter: 2021Q1

REPORT INFORMATION
  Report Type: Spontaneous
  Country: US (occurrence: US)
  Receive Date: 20210225
  Receipt Date: 20210225
  Transmission Date: 20210420
  Serious: No
  Sender: FDA-Public Use
  Company Number: US-CELGENEUS-USA-20210206029

PATIENT
  Age: 20 Year
  Sex: Female

DRUGS (1)
  1. REBLOZYL [Suspect]
     Active Substance: LUSPATERCEPT-AAMT
     Indication: HAEMOGLOBIN E-THALASSAEMIA DISEASE
     Route: 065
     Dates: start: 20200408

REACTIONS (1)
  - Leukocytosis [Unknown]
